FAERS Safety Report 17813804 (Version 1)
Quarter: 2020Q2

REPORT INFORMATION
  Report Type: Spontaneous
  Country: US (occurrence: US)
  Receive Date: 20200521
  Receipt Date: 20200521
  Transmission Date: 20200714
  Serious: Yes (Hospitalization, Disabling, Other)
  Sender: FDA-Public Use
  Company Number: US-JNJFOC-20200518538

PATIENT
  Age: 22 Year
  Sex: Male
  Weight: 81.72 kg

DRUGS (3)
  1. INVEGA SUSTENNA [Suspect]
     Active Substance: PALIPERIDONE PALMITATE
  2. INVEGA SUSTENNA [Suspect]
     Active Substance: PALIPERIDONE PALMITATE
  3. INVEGA SUSTENNA [Suspect]
     Active Substance: PALIPERIDONE PALMITATE
     Indication: BEHAVIOUR DISORDER
     Dosage: TOOK HIS LAST DOSE DECEMBER 2019.
     Route: 030
     Dates: start: 201908

REACTIONS (6)
  - Weight decreased [Unknown]
  - Dehydration [Unknown]
  - Parkinsonism [Not Recovered/Not Resolved]
  - Malaise [Unknown]
  - Product use in unapproved indication [Unknown]
  - Off label use [Unknown]

NARRATIVE: CASE EVENT DATE: 201908
